FAERS Safety Report 5248589-7 (Version None)
Quarter: 2007Q1

REPORT INFORMATION
  Report Type: 
  Country: None (occurrence: None)
  Receive Date: 20070222
  Receipt Date: 20070206
  Transmission Date: 20070707
  Serious: Yes (Hospitalization)
  Sender: FDA-Public Use
  Company Number: DSA_29310_2007

PATIENT
  Age: 65 Year
  Sex: Male
  Weight: 54 kg

DRUGS (10)
  1. RENIVACE [Suspect]
     Indication: CARDIAC FAILURE
     Dosage: 5 MG QD PO
     Route: 048
     Dates: start: 20061126, end: 20070109
  2. NU LOTAN [Suspect]
     Indication: CARDIAC FAILURE
     Dosage: 50 MG QD PO
     Route: 048
     Dates: start: 20061126, end: 20070109
  3. ALDACTONE [Suspect]
     Indication: CARDIAC FAILURE
     Dosage: 2 DF Q DAY PO
     Route: 048
     Dates: start: 20061123, end: 20070109
  4. LUPRAC [Suspect]
     Indication: CARDIAC FAILURE
     Dosage: 1 DF Q DAY PO
     Route: 048
     Dates: start: 20061129, end: 20070109
  5. PREDNISOLONE [Concomitant]
  6. SPELEAR [Concomitant]
  7. HUSTAZOL [Concomitant]
  8. CLARITHROMYCIN [Concomitant]
  9. TAKEPRON [Concomitant]
  10. BAKTAR [Concomitant]

REACTIONS (1)
  - DRUG HYPERSENSITIVITY [None]
